FAERS Safety Report 4331530-9 (Version None)
Quarter: 2004Q1

REPORT INFORMATION
  Report Type: 
  Country: None (occurrence: None)
  Receive Date: 20040327
  Receipt Date: 20040317
  Transmission Date: 20041129
  Serious: No
  Sender: FDA-Public Use
  Company Number: JP_040302741

PATIENT
  Age: 37 Year
  Sex: Male

DRUGS (4)
  1. ZYPREXA [Suspect]
     Indication: SCHIZOPHRENIA
     Dosage: 20 MG DAY
     Route: 048
  2. AKINETON [Concomitant]
  3. HALOPERIDOL [Concomitant]
     Route: 047
  4. HIBERNA       (PROMETHAZINE HYDROCHLORIDE) [Concomitant]
     Route: 048

REACTIONS (1)
  - COMPLETED SUICIDE [None]
